FAERS Safety Report 4811954-3 (Version None)
Quarter: 2005Q4

REPORT INFORMATION
  Report Type: 
  Country: None (occurrence: None)
  Receive Date: 20051028
  Receipt Date: 20041020
  Transmission Date: 20060501
  Serious: No
  Sender: FDA-Public Use
  Company Number: US-GLAXOSMITHKLINE-A0530609A

PATIENT
  Age: 70 Year
  Sex: Male

DRUGS (4)
  1. ADVAIR DISKUS 100/50 [Suspect]
     Indication: COUGH
     Dosage: 1PUFF TWICE PER DAY
     Route: 055
     Dates: start: 20030101
  2. VITAMINS [Concomitant]
  3. VITORIN [Concomitant]
  4. ASPIRIN [Concomitant]

REACTIONS (6)
  - BUCCAL MUCOSAL ROUGHENING [None]
  - COUGH [None]
  - GLOSSODYNIA [None]
  - ORAL PAIN [None]
  - SKIN DISCOLOURATION [None]
  - SWOLLEN TONGUE [None]
